FAERS Safety Report 8876048 (Version 4)
Quarter: 2013Q1

REPORT INFORMATION
  Report Type: Report from Study
  Country: US (occurrence: US)
  Receive Date: 20121023
  Receipt Date: 20130308
  Transmission Date: 20140127
  Serious: Yes (Hospitalization)
  Sender: FDA-Public Use
  Company Number: US-VERTEX PHARMACEUTICAL INC.-2012-023306

PATIENT
  Age: 51 Year
  Sex: Male
  Weight: 90 kg

DRUGS (11)
  1. VX-950 (TELAPREVIR) [Suspect]
     Indication: HEPATITIS C
     Dosage: 750 MG, TID
     Route: 048
  2. PEGASYS [Suspect]
     Indication: HEPATITIS C
     Dosage: 180 ?G, QW
     Route: 058
  3. RIBAVIRIN [Suspect]
     Indication: HEPATITIS C
     Dosage: 400 MG, UNK
  4. OXYCODONE [Concomitant]
     Dosage: 5 MG, UNK
  5. CELEXA [Concomitant]
     Dosage: 10 MG, UNK
  6. MULTIVITAMIN [Concomitant]
  7. VITAMIN C [Concomitant]
     Dosage: 500 MG, UNK
  8. TYLENOL [Concomitant]
     Dosage: 500 MG, UNK
  9. ALBUTEROL [Concomitant]
     Dosage: UNK, PRN
     Route: 055
  10. CIPRO [Concomitant]
     Dosage: 500 MG, BID
     Route: 048
  11. HYDROXYZINE [Concomitant]
     Dosage: 25 MG, QID PRN
     Route: 048

REACTIONS (10)
  - Cellulitis [Unknown]
  - Rash generalised [Unknown]
  - Bed bug infestation [Unknown]
  - Pancytopenia [Unknown]
  - Pulmonary congestion [Unknown]
  - Cough [Unknown]
  - Insomnia [Unknown]
  - Decreased appetite [Unknown]
  - Anaemia [Unknown]
  - Pruritus [Unknown]
